FAERS Safety Report 23080967 (Version 1)
Quarter: 2023Q4

REPORT INFORMATION
  Report Type: Spontaneous
  Country: US (occurrence: US)
  Receive Date: 20231018
  Receipt Date: 20231018
  Transmission Date: 20240109
  Serious: Yes (Hospitalization)
  Sender: FDA-Public Use
  Company Number: US-MYLANLABS-2023M1109427

PATIENT
  Age: 47 Year
  Sex: Female

DRUGS (13)
  1. CLOZAPINE [Suspect]
     Active Substance: CLOZAPINE
     Indication: Schizoaffective disorder
     Dosage: 50 MILLIGRAM, AM (IN MORNING)
     Route: 048
  2. CLOZAPINE [Suspect]
     Active Substance: CLOZAPINE
     Indication: Catatonia
     Dosage: 75 MILLIGRAM, IN EVENING
     Route: 048
  3. CLOZAPINE [Suspect]
     Active Substance: CLOZAPINE
     Dosage: 50 MILLIGRAM, BID, ON DAY 50
     Route: 048
  4. CLOZAPINE [Suspect]
     Active Substance: CLOZAPINE
     Dosage: 25 MILLIGRAM, AM (IN MORNING), ON DAY 60
     Route: 048
  5. CLOZAPINE [Suspect]
     Active Substance: CLOZAPINE
     Dosage: 50 MILLIGRAM, IN EVENING, ON DAY 60.
     Route: 048
  6. POLYETHYLENE GLYCOL 3350 [Suspect]
     Active Substance: POLYETHYLENE GLYCOL 3350
     Indication: Constipation
     Dosage: UNK
     Route: 065
  7. LORAZEPAM [Suspect]
     Active Substance: LORAZEPAM
     Indication: Schizoaffective disorder
     Dosage: UNK, QD, DOSAGE GRADUALLY INCREASING TO A TOTAL OF 8MG DAILY
     Route: 065
  8. LORAZEPAM [Suspect]
     Active Substance: LORAZEPAM
     Indication: Catatonia
  9. SENNA LEAF [Suspect]
     Active Substance: SENNA LEAF
     Indication: Constipation
     Dosage: UNK
     Route: 065
  10. LACTULOSE [Suspect]
     Active Substance: LACTULOSE
     Indication: Constipation
     Dosage: UNK
     Route: 065
  11. ARIPIPRAZOLE [Concomitant]
     Active Substance: ARIPIPRAZOLE
     Indication: Schizoaffective disorder
     Dosage: 15 MILLIGRAM, QD
     Route: 065
  12. RISPERIDONE [Concomitant]
     Active Substance: RISPERIDONE
     Indication: Schizoaffective disorder
     Dosage: 6 MILLIGRAM, OVER 10 DAYS
     Route: 048
  13. RISPERIDONE [Concomitant]
     Active Substance: RISPERIDONE
     Indication: Schizoaffective disorder
     Dosage: 50 MILLIGRAM
     Route: 030

REACTIONS (3)
  - Constipation [Recovering/Resolving]
  - Ileus [Recovered/Resolved]
  - Drug ineffective [Unknown]
